FAERS Safety Report 10528561 (Version 2)
Quarter: 2014Q4

REPORT INFORMATION
  Report Type: Report from Study
  Country: BR (occurrence: BR)
  Receive Date: 20141020
  Receipt Date: 20141024
  Transmission Date: 20150528
  Serious: Yes (Death, Hospitalization)
  Sender: FDA-Public Use
  Company Number: BR-ABBVIE-14K-020-1297290-00

PATIENT
  Age: 77 Year
  Sex: Male

DRUGS (1)
  1. HUMIRA [Suspect]
     Active Substance: ADALIMUMAB
     Indication: RHEUMATOID ARTHRITIS
     Route: 058
     Dates: start: 2011

REACTIONS (9)
  - Arrhythmia [Fatal]
  - Abdominal distension [Unknown]
  - Hypophagia [Unknown]
  - Fall [Recovered/Resolved]
  - Radius fracture [Recovered/Resolved]
  - Femur fracture [Recovered/Resolved]
  - Pleural effusion [Fatal]
  - Diarrhoea [Unknown]
  - Hepatomegaly [Unknown]

NARRATIVE: CASE EVENT DATE: 201403
